FAERS Safety Report 7903544-0 (Version None)
Quarter: 2011Q4

REPORT INFORMATION
  Report Type: 
  Country: None (occurrence: None)
  Receive Date: 20111109
  Receipt Date: 20111109
  Transmission Date: 20120403
  Serious: Yes (Death)
  Sender: FDA-Public Use
  Company Number: None

PATIENT
  Age: 63 Year
  Sex: Female

DRUGS (13)
  1. PLAVIX [Concomitant]
  2. ALBUTEROL [Concomitant]
     Route: 045
  3. NOVOLIN 70/30 [Concomitant]
  4. PEPCID [Concomitant]
  5. PLAK VAC MOUTHWASH [Suspect]
     Indication: PNEUMONIA
     Dates: start: 20110929, end: 20111016
  6. PLAK VAC MOUTHWASH [Suspect]
     Indication: PROPHYLAXIS
     Dates: start: 20110929, end: 20111016
  7. PLAK VAC MOUTHWASH [Suspect]
     Indication: DENTAL DISORDER PROPHYLAXIS
     Dates: start: 20110929, end: 20111016
  8. LASIX [Concomitant]
  9. CEFEPIME [Concomitant]
  10. SOLU-MEDROL [Concomitant]
  11. VANCOMYCIN [Concomitant]
  12. ASPIRIN [Concomitant]
     Route: 048
  13. SALINE [Concomitant]

REACTIONS (12)
  - LUNG INFILTRATION [None]
  - FUNGAL TEST POSITIVE [None]
  - GENERALISED OEDEMA [None]
  - HYPOTENSION [None]
  - PYREXIA [None]
  - BURKHOLDERIA TEST POSITIVE [None]
  - HAEMOPTYSIS [None]
  - PRODUCT CONTAMINATION MICROBIAL [None]
  - ASCITES [None]
  - CONDITION AGGRAVATED [None]
  - ABDOMINAL COMPARTMENT SYNDROME [None]
  - LEUKOCYTOSIS [None]
